FAERS Safety Report 5334902-9 (Version None)
Quarter: 2007Q2

REPORT INFORMATION
  Report Type: 
  Country: None (occurrence: None)
  Receive Date: 20070522
  Receipt Date: 20070509
  Transmission Date: 20071010
  Serious: Yes (Other)
  Sender: FDA-Public Use
  Company Number: 100#03#2007-01635

PATIENT
  Age: 53 Year
  Sex: Female

DRUGS (4)
  1. TRAMADOL HCL [Suspect]
     Indication: OSTEOARTHRITIS
     Dosage: 30 MG (1/1 DAYS), ORAL
     Route: 048
     Dates: start: 20061101, end: 20070401
  2. LISINOPRIL [Concomitant]
  3. PHENYTOIN [Concomitant]
  4. SODIUM VALPROATE (VALPROATE SODIUM) (VALPROIC ACID) [Concomitant]

REACTIONS (1)
  - GRAND MAL CONVULSION [None]
